FAERS Safety Report 9500400 (Version 7)
Quarter: 2014Q2

REPORT INFORMATION
  Report Type: Report from Study
  Country: CO (occurrence: CO)
  Receive Date: 20130905
  Receipt Date: 20140421
  Transmission Date: 20141212
  Serious: Yes (Other)
  Sender: FDA-Public Use
  Company Number: CO-ROCHE-1270310

PATIENT
  Age: 63 Year
  Sex: Female
  Weight: 84 kg

DRUGS (4)
  1. RANIBIZUMAB [Suspect]
     Indication: ANTERIOR CHAMBER OPACITY
     Route: 050
     Dates: start: 20130502
  2. RANIBIZUMAB [Suspect]
     Route: 050
     Dates: start: 201304
  3. LOSARTAN [Concomitant]
  4. GLIBENCLAMIDE [Concomitant]

REACTIONS (3)
  - Anterior chamber opacity [Unknown]
  - Vision blurred [Unknown]
  - Visual acuity reduced [Unknown]
